FAERS Safety Report 9169537 (Version 1)
Quarter: 2013Q1

REPORT INFORMATION
  Report Type: Spontaneous
  Country: US (occurrence: US)
  Receive Date: 20130318
  Receipt Date: 20130318
  Transmission Date: 20140127
  Serious: No
  Sender: FDA-Public Use
  Company Number: US-009507513-1303USA006999

PATIENT
  Sex: Male

DRUGS (6)
  1. VICTRELIS [Suspect]
     Indication: CHRONIC HEPATITIS C
  2. RIBAVIRIN [Suspect]
     Indication: CHRONIC HEPATITIS C
     Dosage: 600 MG, IN DIVIDED DOSES
     Route: 048
  3. RIBAVIRIN [Suspect]
     Dosage: DOSE REDUCED
     Route: 048
     Dates: start: 20120824
  4. RIBAVIRIN [Suspect]
     Dosage: DOSE STOPPED, ABOUT ONE WEEK
     Route: 048
     Dates: start: 20120824
  5. PEGINTERFERON ALFA-2A [Suspect]
     Indication: CHRONIC HEPATITIS C
     Dosage: 180 MICROGRAM, QW
     Route: 058
     Dates: start: 20120824
  6. PROCRIT [Concomitant]

REACTIONS (2)
  - Nausea [Unknown]
  - Anaemia [Unknown]
